FAERS Safety Report 4725698-X (Version None)
Quarter: 2005Q3

REPORT INFORMATION
  Report Type: 
  Country: None (occurrence: None)
  Receive Date: 20050722
  Receipt Date: 20050722
  Transmission Date: 20060218
  Serious: Yes (Hospitalization)
  Sender: FDA-Public Use
  Company Number: None

PATIENT
  Age: 58 Year
  Sex: Male
  Weight: 126.5536 kg

DRUGS (14)
  1. HEPARIN [Suspect]
     Indication: THROMBOSIS PROPHYLAXIS
     Dosage: 8000UNITS ONCE INTRAVENOUS
     Route: 042
     Dates: start: 20050503, end: 20050503
  2. ALPRAZOLAM [Concomitant]
  3. ASPIRIN [Concomitant]
  4. ATENOLOL [Concomitant]
  5. BUPROPION HCL [Concomitant]
  6. CLOPIDOGREL BISULFATE [Concomitant]
  7. HYDROCHLOROTHIAZIDE [Concomitant]
  8. ISOSORBIDE DINITRATE [Concomitant]
  9. LEVOTHYROXINE SODIUM [Concomitant]
  10. OMEPRAZOLE [Concomitant]
  11. PRIMIDONE [Concomitant]
  12. ROSUVASTATIN CA [Concomitant]
  13. SERTRALINE HCL [Concomitant]
  14. TRIAMCINOLONE ACETONIDE [Concomitant]

REACTIONS (5)
  - HAEMATOCRIT DECREASED [None]
  - HAEMATOMA [None]
  - HYPOTENSION [None]
  - PROCEDURAL COMPLICATION [None]
  - VASCULAR PSEUDOANEURYSM [None]
